FAERS Safety Report 17026824 (Version 3)
Quarter: 2019Q4

REPORT INFORMATION
  Report Type: Spontaneous
  Country: AU (occurrence: AU)
  Receive Date: 20191113
  Receipt Date: 20191127
  Transmission Date: 20200122
  Serious: Yes (Hospitalization, Other)
  Sender: FDA-Public Use
  Company Number: AU-PFIZER INC-2019487437

PATIENT
  Sex: Female

DRUGS (5)
  1. DEPO-NISOLONE [Suspect]
     Active Substance: METHYLPREDNISOLONE ACETATE
  2. CELEBREX [Suspect]
     Active Substance: CELECOXIB
     Indication: ARTHRALGIA
  3. CELEBREX [Suspect]
     Active Substance: CELECOXIB
     Indication: INFLAMMATION
     Dosage: 200 MG, UNK
  4. INSULIN [Concomitant]
     Active Substance: INSULIN NOS
     Indication: TYPE 1 DIABETES MELLITUS
     Dosage: UNK
  5. NAROPEINE [Suspect]
     Active Substance: ROPIVACAINE HYDROCHLORIDE
     Dosage: 20 UNK, UNK

REACTIONS (5)
  - Haemorrhage [Unknown]
  - Product prescribing error [Unknown]
  - Sepsis [Unknown]
  - Gastric disorder [Unknown]
  - Necrotising fasciitis [Unknown]
